FAERS Safety Report 10611213 (Version 5)
Quarter: 2015Q2

REPORT INFORMATION
  Report Type: Report from Study
  Country: FR (occurrence: FR)
  Receive Date: 20141126
  Receipt Date: 20150624
  Transmission Date: 20150821
  Serious: Yes (Other)
  Sender: FDA-Public Use
  Company Number: FR-JNJFOC-20141115330

PATIENT
  Sex: Male
  Weight: 85 kg

DRUGS (28)
  1. MYAMBUTOL [Concomitant]
     Active Substance: ETHAMBUTOL HYDROCHLORIDE
     Indication: TUBERCULOSIS
  2. EFFEXOR [Concomitant]
     Active Substance: VENLAFAXINE HYDROCHLORIDE
     Route: 065
  3. XANAX [Concomitant]
     Active Substance: ALPRAZOLAM
     Route: 065
  4. VOLTAREN [Concomitant]
     Active Substance: DICLOFENAC SODIUM
  5. ETHAMBUTOL [Concomitant]
     Active Substance: ETHAMBUTOL HYDROCHLORIDE
     Indication: ANTIBIOTIC PROPHYLAXIS
     Route: 065
  6. VITAMIN B6 [Concomitant]
     Active Substance: PYRIDOXINE HYDROCHLORIDE
  7. LAROXYL [Concomitant]
     Active Substance: AMITRIPTYLINE
     Route: 065
  8. AMIKACIN [Concomitant]
     Active Substance: AMIKACIN
     Indication: TUBERCULOSIS
  9. MYAMBUTOL [Concomitant]
     Active Substance: ETHAMBUTOL HYDROCHLORIDE
     Indication: TUBERCULOSIS
  10. PIRILENE [Concomitant]
     Active Substance: PYRAZINAMIDE
     Indication: TUBERCULOSIS
     Route: 065
  11. INNOHEP [Concomitant]
     Active Substance: TINZAPARIN SODIUM
  12. TAHOR [Concomitant]
     Active Substance: ATORVASTATIN CALCIUM
     Route: 065
  13. LAROXYL [Concomitant]
     Active Substance: AMITRIPTYLINE
     Dosage: 35 DROPS
     Route: 065
  14. INEXIUM [Concomitant]
     Active Substance: ESOMEPRAZOLE
  15. INEXIUM [Concomitant]
     Active Substance: ESOMEPRAZOLE
  16. NEURONTIN [Concomitant]
     Active Substance: GABAPENTIN
     Route: 065
  17. KARDEGIC [Concomitant]
     Active Substance: ASPIRIN LYSINE
     Route: 065
  18. KARDEGIC [Concomitant]
     Active Substance: ASPIRIN LYSINE
     Route: 065
  19. EFFEXOR [Concomitant]
     Active Substance: VENLAFAXINE HYDROCHLORIDE
     Route: 065
  20. TMC207 [Suspect]
     Active Substance: BEDAQUILINE
     Indication: TUBERCULOSIS
     Route: 048
     Dates: start: 20140603
  21. PIRILENE [Concomitant]
     Active Substance: PYRAZINAMIDE
     Indication: TUBERCULOSIS
     Route: 065
  22. VITAMIN B1 [Concomitant]
     Active Substance: THIAMINE HYDROCHLORIDE
  23. IZILOX [Concomitant]
     Active Substance: MOXIFLOXACIN HYDROCHLORIDE
     Indication: TUBERCULOSIS
  24. STILNOX [Concomitant]
     Active Substance: ZOLPIDEM TARTRATE
  25. XANAX [Concomitant]
     Active Substance: ALPRAZOLAM
     Route: 065
  26. KARDEGIC [Concomitant]
     Active Substance: ASPIRIN LYSINE
     Route: 065
  27. LAROXYL [Concomitant]
     Active Substance: AMITRIPTYLINE
     Route: 065
  28. ALPRAZOLAM. [Concomitant]
     Active Substance: ALPRAZOLAM
     Route: 065

REACTIONS (3)
  - Tuberculosis [Unknown]
  - Off label use [Unknown]
  - Drug eruption [Unknown]
